FAERS Safety Report 6336284-2 (Version None)
Quarter: 2009Q3

REPORT INFORMATION
  Report Type: 
  Country: None (occurrence: None)
  Receive Date: 20090901
  Receipt Date: 20090824
  Transmission Date: 20100115
  Serious: Yes (Hospitalization, Other)
  Sender: FDA-Public Use
  Company Number: PHEH2009US09656

PATIENT
  Sex: Female
  Weight: 76.644 kg

DRUGS (14)
  1. RECLAST [Suspect]
     Indication: OSTEOPOROSIS
     Dosage: 5 MG, ONCE/SINGLE
     Route: 042
     Dates: start: 20080821, end: 20080821
  2. GLUCOPHAGE [Concomitant]
     Dosage: 750 MG, TID
  3. HALCION [Concomitant]
     Dosage: .25 MG, QHS
  4. HUMIRA [Concomitant]
     Dosage: 40 MG, QOW
  5. JANUVIA [Concomitant]
     Dosage: 100 MG, UNK
  6. LASIX [Concomitant]
     Dosage: 40 MG, UNK
  7. NEXIUM [Concomitant]
     Dosage: 40 MG, QD
  8. PHENERGAN ^AVENTIS PHARMA^ [Concomitant]
     Dosage: 25 MG, Q6H, PRN
  9. SINGULAIR [Concomitant]
     Dosage: 10 MG, QHS
  10. SYNTHROID [Concomitant]
     Dosage: .5 MG, UNK
  11. TENORMIN [Concomitant]
     Dosage: 50 MG, UNK
  12. TRICOR [Concomitant]
     Dosage: 145 MG, UNK
  13. TYLENOL W/ CODEINE NO. 3 [Concomitant]
  14. ZOLOFT [Concomitant]
     Dosage: 50 MG, BID

REACTIONS (5)
  - DENTAL CARIES [None]
  - PNEUMONIA [None]
  - TOOTH ABSCESS [None]
  - TOOTH EXTRACTION [None]
  - TOOTHACHE [None]
